FAERS Safety Report 19733758 (Version 1)
Quarter: 2021Q3

REPORT INFORMATION
  Report Type: Spontaneous
  Country: US (occurrence: US)
  Receive Date: 20210823
  Receipt Date: 20210823
  Transmission Date: 20211014
  Serious: Yes (Other)
  Sender: FDA-Public Use
  Company Number: US-JNJFOC-20210827251

PATIENT
  Age: 42 Year
  Sex: Female

DRUGS (1)
  1. NEUTROGENA BEACH DEF WATER PLUS SUN PROTECT BR^D SPECT SPF 70 (AV\HOM\OCTI\OCTO) [Suspect]
     Active Substance: AVOBENZONE\HOMOSALATE\OCTISALATE\OCTOCRYLENE
     Indication: PROPHYLAXIS AGAINST SOLAR RADIATION
     Dosage: APPLIED LIBERALLY MORE THAN TWICE A WEEK DURING THE SUMMER, OTHER SEASONS WERE SPORADIC
     Route: 061
     Dates: start: 20110101

REACTIONS (2)
  - Exposure during pregnancy [Unknown]
  - Skin cancer [Recovered/Resolved]

NARRATIVE: CASE EVENT DATE: 20190101
